FAERS Safety Report 9406055 (Version 2)
Quarter: 2013Q3

REPORT INFORMATION
  Report Type: Spontaneous
  Country: JP (occurrence: JP)
  Receive Date: 20130717
  Receipt Date: 20130819
  Transmission Date: 20140515
  Serious: No
  Sender: FDA-Public Use
  Company Number: JP-009507513-1307JPN007069

PATIENT
  Age: 87 Year
  Sex: Female

DRUGS (13)
  1. JANUVIA TABLETS 50MG [Suspect]
     Indication: TYPE 2 DIABETES MELLITUS
     Dosage: 50 MG, QD, MORNING
     Route: 048
     Dates: start: 20130705, end: 20130708
  2. CRAVIT [Suspect]
     Indication: URINARY TRACT INFECTION
     Dosage: 500 MG, HS
     Route: 048
     Dates: start: 20130705, end: 20130714
  3. CRAVIT [Suspect]
  4. RESLIN TABLETS 25 [Concomitant]
     Indication: INSOMNIA
     Dosage: 25 MG, QD
     Route: 048
     Dates: start: 20130213
  5. ALDACTONE A [Concomitant]
     Indication: CARDIAC FAILURE
     Dosage: 25 MG, QD
     Route: 048
     Dates: start: 20121112
  6. LANSOPRAZOLE [Concomitant]
     Indication: GASTROOESOPHAGEAL REFLUX DISEASE
     Dosage: 15 MG, QD
     Route: 048
     Dates: start: 20121219
  7. DONEPEZIL HYDROCHLORIDE [Concomitant]
     Indication: DEMENTIA
     Dosage: 5 MG, QD
     Route: 048
     Dates: start: 20121207
  8. GASMOTIN [Concomitant]
     Indication: GASTRITIS
     Dosage: 5 MG, BID
     Route: 048
     Dates: start: 20121112
  9. BIOFERMIN (BACILLUS SUBTILIS (+) LACTOBACILLUS ACIDOPHILUS (+) STREPTO [Concomitant]
     Indication: COLITIS
     Dosage: 1 DF, BID
     Route: 048
     Dates: start: 20130130
  10. CELECOX [Concomitant]
     Indication: BACK PAIN
     Dosage: 100 MG, BID
     Route: 048
     Dates: start: 20121119
  11. METLIGINE [Concomitant]
     Indication: HYPOTENSION
     Dosage: 2 MG, BID
     Route: 048
     Dates: start: 20130703
  12. PROMAC (POLAPREZINC) [Concomitant]
     Indication: DYSGEUSIA
     Dosage: 75 MG, BID
     Route: 048
     Dates: start: 20130705, end: 20130714
  13. LUPRAC [Concomitant]
     Dosage: UNK
     Dates: end: 20130703

REACTIONS (1)
  - Hypoglycaemia [Recovered/Resolved]
